FAERS Safety Report 4556703-1 (Version None)
Quarter: 2005Q1

REPORT INFORMATION
  Report Type: 
  Country: None (occurrence: None)
  Receive Date: 20050120
  Receipt Date: 20050112
  Transmission Date: 20050727
  Serious: Yes (Hospitalization)
  Sender: FDA-Public Use
  Company Number: 200510316US

PATIENT
  Age: 62 Year
  Sex: Female

DRUGS (10)
  1. AMARYL [Suspect]
     Indication: DIABETES MELLITUS NON-INSULIN-DEPENDENT
     Route: 048
  2. LANTUS [Concomitant]
     Dosage: DOSE: UNK
     Dates: start: 20050104
  3. GLYSET [Concomitant]
     Dosage: DOSE: UNK
  4. COZAAR [Concomitant]
     Dosage: DOSE: UNK
  5. POTASSIUM [Concomitant]
     Dosage: DOSE: UNK
  6. BUMEX [Concomitant]
     Dosage: DOSE: UNK
  7. LUMIGAN [Concomitant]
     Dosage: DOSE: UNK
  8. ZYRTEC [Concomitant]
     Dosage: DOSE: UNK
  9. PROVENTIL [Concomitant]
     Dosage: DOSE: UNK
  10. AGGRENOX [Concomitant]
     Dosage: DOSE: UNK

REACTIONS (4)
  - BLOOD GLUCOSE INCREASED [None]
  - CEREBROVASCULAR ACCIDENT [None]
  - EYE PAIN [None]
  - HEMIPARESIS [None]
